FAERS Safety Report 7285676-6 (Version None)
Quarter: 2011Q1

REPORT INFORMATION
  Report Type: 
  Country: None (occurrence: None)
  Receive Date: 20110210
  Receipt Date: 20110202
  Transmission Date: 20110831
  Serious: Yes (Death)
  Sender: FDA-Public Use
  Company Number: B0697444A

PATIENT
  Age: 20 Month
  Sex: Male
  Weight: 10 kg

DRUGS (22)
  1. SIMULECT [Suspect]
     Dosage: 10MG SINGLE DOSE
     Route: 042
     Dates: start: 20101223, end: 20101223
  2. BACTRIM [Suspect]
     Route: 042
     Dates: start: 20101223
  3. SUFENTA PRESERVATIVE FREE [Suspect]
     Dosage: 5MCG UNKNOWN
     Route: 042
     Dates: start: 20101223, end: 20101223
  4. SEVOFLURANE [Suspect]
     Route: 055
     Dates: start: 20101223, end: 20101223
  5. LASIX [Suspect]
     Dosage: 10MG UNKNOWN
     Route: 042
     Dates: start: 20101223, end: 20101223
  6. HYPNOVEL [Suspect]
     Dosage: 5MGML UNKNOWN
     Route: 042
     Dates: start: 20101223, end: 20101223
  7. ATROPINE [Suspect]
     Dosage: 200MCG UNKNOWN
     Route: 042
     Dates: start: 20101223, end: 20101223
  8. ADRENALIN IN OIL INJ [Suspect]
     Dosage: 200MCG UNKNOWN
     Route: 042
     Dates: start: 20101223, end: 20101223
  9. CELLCEPT [Suspect]
     Dosage: 280MG UNKNOWN
     Route: 042
     Dates: start: 20101223, end: 20101224
  10. ROCEPHIN [Suspect]
     Dosage: 250MGML UNKNOWN
     Route: 042
     Dates: start: 20101223
  11. ALBUMIN (HUMAN) [Suspect]
     Dosage: 40MGML UNKNOWN
     Route: 042
     Dates: start: 20101223, end: 20101224
  12. COROTROPE [Suspect]
     Dosage: .4UGKM UNKNOWN
     Route: 042
     Dates: start: 20101224
  13. VENTOLIN [Suspect]
     Route: 065
     Dates: start: 20101223, end: 20101223
  14. CALCIPARINE [Suspect]
     Route: 058
     Dates: start: 20101223, end: 20101223
  15. KETAMINE HCL [Suspect]
     Dosage: 20MG UNKNOWN
     Route: 042
     Dates: start: 20101224, end: 20101224
  16. TRACRIUM [Suspect]
     Dosage: 5MG UNKNOWN
     Route: 042
     Dates: start: 20101223, end: 20101223
  17. NORADRENALINE [Suspect]
     Dosage: 2MG UNKNOWN
     Route: 042
     Dates: start: 20101223, end: 20101224
  18. PERFALGAN [Suspect]
     Dosage: 200MG UNKNOWN
     Route: 042
     Dates: start: 20101223, end: 20101224
  19. NEXIUM [Suspect]
     Dosage: 20MG UNKNOWN
     Route: 042
     Dates: start: 20101223, end: 20101223
  20. MORPHINE [Suspect]
     Route: 042
     Dates: start: 20101223
  21. FLAGYL [Suspect]
     Dosage: 30MGKD PER DAY
     Route: 042
     Dates: start: 20101224, end: 20101224
  22. SOLU-MEDROL [Suspect]
     Dosage: 140MG UNKNOWN
     Route: 042
     Dates: start: 20101223, end: 20101223

REACTIONS (15)
  - HAEMORRHAGE [None]
  - SPLENOMEGALY [None]
  - AGITATION [None]
  - PRODUCTIVE COUGH [None]
  - ACUTE PULMONARY OEDEMA [None]
  - PALLOR [None]
  - HYPERTHERMIA [None]
  - HYPOXIA [None]
  - TACHYPNOEA [None]
  - RESPIRATORY FAILURE [None]
  - BRADYCARDIA [None]
  - HAEMODYNAMIC INSTABILITY [None]
  - CARDIAC FAILURE [None]
  - TACHYARRHYTHMIA [None]
  - PLEURAL EFFUSION [None]
